FAERS Safety Report 15365920 (Version 3)
Quarter: 2019Q4

REPORT INFORMATION
  Report Type: Spontaneous
  Country: FR (occurrence: FR)
  Receive Date: 20180910
  Receipt Date: 20191212
  Transmission Date: 20200122
  Serious: Yes (Hospitalization)
  Sender: FDA-Public Use
  Company Number: PHHY2018FR092512

PATIENT
  Age: 58 Year
  Sex: Female
  Weight: 44.5 kg

DRUGS (16)
  1. ARACYTINE [Suspect]
     Active Substance: CYTARABINE
     Dosage: 200 MG/M2, UNK
     Route: 041
     Dates: end: 20180627
  2. CERUBIDINE [Suspect]
     Active Substance: DAUNORUBICIN HYDROCHLORIDE
     Indication: ACUTE MYELOID LEUKAEMIA
     Dosage: 60 MG/M2, UNK
     Route: 041
     Dates: start: 20180319, end: 20190321
  3. PANTOPRAZOLE MYLAN [Concomitant]
     Active Substance: PANTOPRAZOLE SODIUM
     Indication: PRODUCT USED FOR UNKNOWN INDICATION
     Dosage: UNK
     Route: 065
  4. OROZAMUDOL [Suspect]
     Active Substance: TRAMADOL
     Indication: HEADACHE
     Dosage: 100 MG, UNK
     Route: 048
     Dates: start: 20180815, end: 20180815
  5. MIANSERINE ARROW [Suspect]
     Active Substance: MIANSERIN HYDROCHLORIDE
     Indication: DEPRESSION
     Dosage: 1 ?G/L, QD
     Route: 048
     Dates: start: 20180808, end: 20180816
  6. AMBISOME [Concomitant]
     Active Substance: AMPHOTERICIN B
     Indication: LUNG DISORDER
     Dosage: 180 MG, UNK
     Route: 041
     Dates: start: 20180727, end: 20180817
  7. MERONEM [Concomitant]
     Active Substance: MEROPENEM
     Indication: LUNG DISORDER
     Dosage: 6 G, QD
     Route: 041
     Dates: start: 20180726
  8. ZYVOXID [Concomitant]
     Active Substance: LINEZOLID
     Indication: PRODUCT USED FOR UNKNOWN INDICATION
     Dosage: UNK
     Route: 065
     Dates: start: 20180713, end: 20180730
  9. CRESEMBA [Concomitant]
     Active Substance: ISAVUCONAZONIUM SULFATE
     Indication: PRODUCT USED FOR UNKNOWN INDICATION
     Dosage: UNK
     Route: 065
     Dates: start: 20180717, end: 20180727
  10. HYDROXYZINE [Concomitant]
     Active Substance: HYDROXYZINE HYDROCHLORIDE
     Indication: PRODUCT USED FOR UNKNOWN INDICATION
     Dosage: UNK
     Route: 065
  11. MAGNESIUM [Concomitant]
     Active Substance: MAGNESIUM
     Indication: PRODUCT USED FOR UNKNOWN INDICATION
     Dosage: UNK
     Route: 065
  12. RYDAPT [Suspect]
     Active Substance: MIDOSTAURIN
     Indication: ACUTE MYELOID LEUKAEMIA
     Dosage: 50 MG, QD (50MG / D OF J8 A J 21)
     Route: 048
     Dates: start: 20180327, end: 20180714
  13. ARACYTINE [Suspect]
     Active Substance: CYTARABINE
     Indication: ACUTE MYELOID LEUKAEMIA
     Dosage: UNK
     Route: 041
     Dates: start: 20180319
  14. NEBIVOLOL SANDOZ [Concomitant]
     Active Substance: NEBIVOLOL
     Indication: PRODUCT USED FOR UNKNOWN INDICATION
     Dosage: UNK
     Route: 065
  15. PARACETAMOL [Concomitant]
     Active Substance: ACETAMINOPHEN
     Indication: PRODUCT USED FOR UNKNOWN INDICATION
     Dosage: UNK
     Route: 065
  16. ARACYTINE [Suspect]
     Active Substance: CYTARABINE
     Dosage: 3000 MG/M2, UNK
     Route: 041
     Dates: start: 20180326

REACTIONS (5)
  - Echocardiogram abnormal [Not Recovered/Not Resolved]
  - Vertigo [Recovering/Resolving]
  - Dysarthria [Recovering/Resolving]
  - Cerebellar syndrome [Recovering/Resolving]
  - Cardiac failure [Not Recovered/Not Resolved]

NARRATIVE: CASE EVENT DATE: 20180730
